FAERS Safety Report 14413141 (Version 3)
Quarter: 2018Q1

REPORT INFORMATION
  Report Type: Report from Study
  Country: US (occurrence: US)
  Receive Date: 20180119
  Receipt Date: 20180323
  Transmission Date: 20180509
  Serious: Yes (Other)
  Sender: FDA-Public Use
  Company Number: PHEH2018US002144

PATIENT
  Sex: Female

DRUGS (1)
  1. ILARIS [Suspect]
     Active Substance: CANAKINUMAB
     Indication: CRYOPYRIN ASSOCIATED PERIODIC SYNDROME
     Dosage: 600 MG, UNK (EVERY 6 WEEKS)
     Route: 058

REACTIONS (5)
  - Rash [Unknown]
  - Product use issue [Unknown]
  - Fatigue [Unknown]
  - Condition aggravated [Unknown]
  - Cryopyrin associated periodic syndrome [Unknown]
